FAERS Safety Report 9671640 (Version 1)
Quarter: 2013Q4

REPORT INFORMATION
  Report Type: Spontaneous
  Country: FR (occurrence: None)
  Receive Date: 20131104
  Receipt Date: 20131104
  Transmission Date: 20140711
  Serious: Yes (Hospitalization)
  Sender: FDA-Public Use
  Company Number: 1927637

PATIENT
  Age: 60 Year
  Sex: Female

DRUGS (7)
  1. CARBOPLATIN [Suspect]
     Indication: BREAST CANCER METASTATIC
     Route: 042
     Dates: start: 20110302, end: 20110302
  2. PLACITAXEL EBEWE [Concomitant]
  3. HERCEPTIN [Concomitant]
  4. POLARMINE [Concomitant]
  5. METHYPREDNISOLONE MERCK [Concomitant]
  6. ZOPHREN [Concomitant]
  7. AZANTAC [Concomitant]

REACTIONS (3)
  - Nausea [None]
  - Feeling hot [None]
  - Erythema [None]
